FAERS Safety Report 17054400 (Version 1)
Quarter: 2019Q4

REPORT INFORMATION
  Report Type: Spontaneous
  Country: US (occurrence: US)
  Receive Date: 20191120
  Receipt Date: 20191120
  Transmission Date: 20200122
  Serious: No
  Sender: FDA-Public Use
  Company Number: US-BAYER-2019-209826

PATIENT
  Age: 3 Year
  Sex: Female

DRUGS (3)
  1. VITAMINS NOS [Concomitant]
     Active Substance: VITAMINS
  2. MIRALAX [Suspect]
     Active Substance: POLYETHYLENE GLYCOL 3350
     Indication: CONSTIPATION
     Dosage: 0.5 DF
     Route: 048
     Dates: start: 2016
  3. MIRALAX [Suspect]
     Active Substance: POLYETHYLENE GLYCOL 3350
     Indication: CONSTIPATION
     Dosage: 0.3 DF
     Route: 048

REACTIONS (1)
  - Incorrect dose administered [Unknown]
